FAERS Safety Report 7497223-4 (Version None)
Quarter: 2011Q2

REPORT INFORMATION
  Report Type: 
  Country: None (occurrence: None)
  Receive Date: 20110523
  Receipt Date: 20110518
  Transmission Date: 20111010
  Serious: Yes (Other)
  Sender: FDA-Public Use
  Company Number: JP-PFIZER INC-2011107126

PATIENT
  Age: 35 Year
  Sex: Female

DRUGS (3)
  1. LOXONIN [Concomitant]
  2. AZULFIDINE [Suspect]
     Indication: RHEUMATOID ARTHRITIS
  3. MUCOSTA [Concomitant]

REACTIONS (3)
  - MYOSITIS [None]
  - NEUROPSYCHIATRIC LUPUS [None]
  - MENINGITIS [None]
